FAERS Safety Report 15927710 (Version 2)
Quarter: 2019Q2

REPORT INFORMATION
  Report Type: Report from Study
  Country: US (occurrence: US)
  Receive Date: 20190206
  Receipt Date: 20190603
  Transmission Date: 20190711
  Serious: No
  Sender: FDA-Public Use
  Company Number: US-SA-2017SA269011

PATIENT
  Age: 57 Year
  Sex: Male

DRUGS (2)
  1. SARILUMAB [Suspect]
     Active Substance: SARILUMAB
     Indication: RHEUMATOID ARTHRITIS
     Dosage: 200 MG, QOW
     Route: 058
  2. SARILUMAB [Suspect]
     Active Substance: SARILUMAB
     Dosage: 200 MG,QOW
     Route: 058
     Dates: start: 20171024

REACTIONS (7)
  - Product use issue [Unknown]
  - Pollakiuria [Not Recovered/Not Resolved]
  - C-reactive protein abnormal [Unknown]
  - Gout [Unknown]
  - Sleep disorder [Not Recovered/Not Resolved]
  - Red blood cell sedimentation rate increased [Unknown]
  - Therapy cessation [Not Recovered/Not Resolved]

NARRATIVE: CASE EVENT DATE: 201710
